FAERS Safety Report 5601310-2 (Version None)
Quarter: 2008Q1

REPORT INFORMATION
  Report Type: 
  Country: None (occurrence: None)
  Receive Date: 20080124
  Receipt Date: 20080121
  Transmission Date: 20080703
  Serious: Yes (Hospitalization)
  Sender: FDA-Public Use
  Company Number: B0504294A

PATIENT

DRUGS (1)
  1. ALBENDAZOLE [Suspect]
     Indication: CHOLESTASIS
     Dosage: 800MG PER DAY
     Route: 048
     Dates: start: 20071001, end: 20071219

REACTIONS (2)
  - CHOLESTASIS [None]
  - CONDITION AGGRAVATED [None]
